FAERS Safety Report 10238261 (Version 1)
Quarter: 2014Q2

REPORT INFORMATION
  Report Type: Spontaneous
  Country: US (occurrence: US)
  Receive Date: 20140616
  Receipt Date: 20140616
  Transmission Date: 20141212
  Serious: No
  Sender: FDA-Public Use
  Company Number: US-PFIZER INC-2014164079

PATIENT
  Sex: Male

DRUGS (1)
  1. LYRICA [Suspect]
     Dosage: UNK, 2X/DAY
     Route: 048
     Dates: start: 2009

REACTIONS (4)
  - Joint swelling [Unknown]
  - Local swelling [Unknown]
  - Dyspnoea [Unknown]
  - Pruritus [Unknown]
